FAERS Safety Report 14372222 (Version 1)
Quarter: 2018Q1

REPORT INFORMATION
  Report Type: Spontaneous
  Country: US (occurrence: US)
  Receive Date: 20180110
  Receipt Date: 20180110
  Transmission Date: 20180509
  Serious: Yes (Disabling, Other)
  Sender: FDA-Public Use
  Company Number: US-REGENERON PHARMACEUTICALS, INC.-2017-23740

PATIENT

DRUGS (2)
  1. EYLEA [Suspect]
     Active Substance: AFLIBERCEPT
     Indication: NEOVASCULAR AGE-RELATED MACULAR DEGENERATION
     Dosage: 2 MG, OD, Q 1-2 MONTHS
     Route: 031
     Dates: start: 20161019, end: 20170913
  2. EYLEA [Suspect]
     Active Substance: AFLIBERCEPT
     Dosage: 2 MG, LAST DOSE PRIOR TO EVENTS
     Route: 031
     Dates: start: 20170816, end: 20170816

REACTIONS (4)
  - Vitritis [Recovered/Resolved]
  - Blindness transient [Recovered/Resolved]
  - Vitritis [Unknown]
  - Hypopyon [Unknown]

NARRATIVE: CASE EVENT DATE: 20170913
